FAERS Safety Report 5871522-1 (Version None)
Quarter: 2008Q3

REPORT INFORMATION
  Report Type: 
  Country: None (occurrence: None)
  Receive Date: 20080904
  Receipt Date: 20080904
  Transmission Date: 20090109
  Serious: No
  Sender: FDA-Public Use
  Company Number: None

PATIENT
  Age: 74 Year
  Sex: Male
  Weight: 99.7913 kg

DRUGS (1)
  1. OXYCODONE AND ACETAMINOPHEN [Suspect]
     Indication: SURGERY
     Dosage: 1 OR 2 TAB EVERY 4-6 HRS
     Dates: start: 20080818, end: 20080819

REACTIONS (2)
  - FLUSHING [None]
  - PRURITUS GENERALISED [None]
